FAERS Safety Report 8288142-4 (Version None)
Quarter: 2012Q2

REPORT INFORMATION
  Report Type: 
  Country: None (occurrence: None)
  Receive Date: 20120416
  Receipt Date: 20120410
  Transmission Date: 20120825
  Serious: Yes (Death)
  Sender: FDA-Public Use
  Company Number: US-BAYER-2012-003369

PATIENT
  Age: 57 Year
  Sex: Female

DRUGS (3)
  1. VOLUMEN [Concomitant]
  2. ULTRAVIST 150 [Suspect]
     Indication: COMPUTERISED TOMOGRAM
     Dosage: 100 ML, ONCE
     Route: 042
     Dates: start: 20071025
  3. ULTRAVIST 150 [Suspect]
     Indication: ABDOMINAL PAIN

REACTIONS (1)
  - DEATH [None]
